FAERS Safety Report 13877130 (Version 1)
Quarter: 2017Q3

REPORT INFORMATION
  Report Type: Spontaneous
  Country: US (occurrence: US)
  Receive Date: 20170814
  Receipt Date: 20170814
  Transmission Date: 20171127
  Serious: Yes (Other)
  Sender: FDA-Public Use
  Company Number: None

PATIENT
  Age: 22 Year
  Sex: Male
  Weight: 81 kg

DRUGS (1)
  1. DYMISTA [Suspect]
     Active Substance: AZELASTINE HYDROCHLORIDE\FLUTICASONE PROPIONATE
     Indication: RHINITIS ALLERGIC
     Route: 045

REACTIONS (6)
  - Pulmonary congestion [None]
  - Insomnia [None]
  - Fatigue [None]
  - Rhinorrhoea [None]
  - Headache [None]
  - Nasal septum perforation [None]

NARRATIVE: CASE EVENT DATE: 20170601
